FAERS Safety Report 7703425-1 (Version None)
Quarter: 2011Q3

REPORT INFORMATION
  Report Type: 
  Country: None (occurrence: None)
  Receive Date: 20110823
  Receipt Date: 20110823
  Transmission Date: 20111222
  Serious: Yes (Other)
  Sender: FDA-Public Use
  Company Number: None

PATIENT
  Age: 35 Year
  Sex: Male
  Weight: 88.45 kg

DRUGS (3)
  1. EFFEXOR [Concomitant]
  2. SEROQUEL [Concomitant]
  3. LAMOTRIGINE [Suspect]
     Indication: BIPOLAR DISORDER
     Dosage: 200 MGM
     Route: 048

REACTIONS (4)
  - RASH [None]
  - DERMATITIS [None]
  - DRUG ERUPTION [None]
  - PRODUCT SUBSTITUTION ISSUE [None]
